FAERS Safety Report 4914966-4 (Version None)
Quarter: 2006Q1

REPORT INFORMATION
  Report Type: 
  Country: None (occurrence: None)
  Receive Date: 20060217
  Receipt Date: 20060209
  Transmission Date: 20060701
  Serious: Yes (Other)
  Sender: FDA-Public Use
  Company Number: FR-ABBOTT-06P-056-0324525-00

PATIENT
  Age: 3 Year
  Sex: Male

DRUGS (2)
  1. MICROPAKINE GRANULE [Suspect]
     Indication: DRUG USE FOR UNKNOWN INDICATION
     Route: 048
     Dates: start: 20060123
  2. MICROPAKINE GRANULE [Suspect]
     Dosage: 100 MG Q AM, 150 MG Q PM
     Route: 048
     Dates: end: 20060123

REACTIONS (1)
  - CONVULSION [None]
